FAERS Safety Report 6535413-5 (Version None)
Quarter: 2010Q1

REPORT INFORMATION
  Report Type: 
  Country: None (occurrence: None)
  Receive Date: 20100111
  Receipt Date: 20100111
  Transmission Date: 20100710
  Serious: No
  Sender: FDA-Public Use
  Company Number: None

PATIENT
  Sex: Female
  Weight: 85.2762 kg

DRUGS (1)
  1. LANTUS [Suspect]
     Indication: TYPE 2 DIABETES MELLITUS
     Dosage: 20 UNITS BEDTIME
     Dates: start: 20091212, end: 20091225

REACTIONS (3)
  - DYSURIA [None]
  - FLUID RETENTION [None]
  - WEIGHT INCREASED [None]
